FAERS Safety Report 10310100 (Version 1)
Quarter: 2014Q3

REPORT INFORMATION
  Report Type: Spontaneous
  Country: US (occurrence: None)
  Receive Date: 20140715
  Receipt Date: 20140715
  Transmission Date: 20150326
  Serious: Yes (Life-Threatening, Hospitalization, Disabling)
  Sender: FDA-Public Use
  Company Number: None

PATIENT
  Age: 64 Year
  Sex: Female
  Weight: 74.39 kg

DRUGS (2)
  1. DI-DELAMINE [Suspect]
     Active Substance: DIPHENHYDRAMINE HYDROCHLORIDE\TRIPELENNAMINE HYDROCHLORIDE
     Indication: PRURITUS
  2. DI-DELAMINE [Suspect]
     Active Substance: DIPHENHYDRAMINE HYDROCHLORIDE\TRIPELENNAMINE HYDROCHLORIDE
     Indication: EPILEPSY

REACTIONS (1)
  - Product label issue [None]

NARRATIVE: CASE EVENT DATE: 20140713
